FAERS Safety Report 19936334 (Version 1)
Quarter: 2021Q4

REPORT INFORMATION
  Report Type: Spontaneous
  Country: KZ (occurrence: KZ)
  Receive Date: 20211009
  Receipt Date: 20211009
  Transmission Date: 20220303
  Serious: Yes (Life-Threatening, Hospitalization, Other)
  Sender: FDA-Public Use
  Company Number: KZ-MLMSERVICE-20210929-3133534-1

PATIENT
  Age: 30 Month
  Sex: Female

DRUGS (1)
  1. METHOTREXATE [Suspect]
     Active Substance: METHOTREXATE
     Indication: Acute lymphocytic leukaemia
     Dosage: 24-H HIGH-DOSE METHOTREXATE INFUSION

REACTIONS (6)
  - Pneumonia [Recovering/Resolving]
  - Acute kidney injury [Recovering/Resolving]
  - Epidermolysis [Recovering/Resolving]
  - Hepatitis [Recovering/Resolving]
  - Sepsis [Recovering/Resolving]
  - Mucosal inflammation [Recovering/Resolving]
